FAERS Safety Report 7662694 (Version 3)
Quarter: 2013Q1

REPORT INFORMATION
  Report Type: Report from Study
  Country: JP (occurrence: JP)
  Receive Date: 20101110
  Receipt Date: 20130220
  Transmission Date: 20140127
  Serious: Yes (Other)
  Sender: FDA-Public Use
  Company Number: PHHY2010JP03627

PATIENT
  Age: 65 Year
  Sex: Female

DRUGS (22)
  1. AMN107 [Suspect]
     Indication: CHRONIC MYELOID LEUKAEMIA
     Dosage: 200 MG DAILY
     Route: 048
     Dates: start: 20090903, end: 20090923
  2. AMN107 [Suspect]
     Dosage: 200 MG, EVERY TWO DAYS.
     Route: 048
     Dates: start: 20090924, end: 20091008
  3. AMN107 [Suspect]
     Dosage: TOTAL 200 MG (TWO DOSES) EVERY WEEK.
     Route: 048
     Dates: start: 20091009, end: 20091018
  4. AMN107 [Suspect]
     Dosage: TOTAL 200 MG (THREE DOSES) EVERY WEEK
     Route: 048
     Dates: start: 20091019, end: 20100120
  5. AMN107 [Suspect]
     Dosage: 200 MG, FOUR TIMES A WEEK
     Route: 048
     Dates: start: 20100121, end: 20100325
  6. AMN107 [Suspect]
     Dosage: 200 MG FIVE TIMES A WEEK
     Route: 048
     Dates: start: 20100326, end: 20100411
  7. AMN107 [Suspect]
     Dosage: 200 MG FOUR TIMES A WEEK
     Route: 048
     Dates: start: 20100412, end: 20100505
  8. AMN107 [Suspect]
     Dosage: 200 MG FIVE TIMES A WEEK
     Route: 048
     Dates: start: 20100506, end: 20100609
  9. AMN107 [Suspect]
     Dosage: 200 MG FOUR TIMES A WEEK
     Route: 048
     Dates: start: 20100610
  10. HYDREA [Concomitant]
     Indication: CHRONIC MYELOID LEUKAEMIA
     Dosage: 500 MG
     Route: 048
     Dates: start: 20020925, end: 20040823
  11. MUCOSTA [Concomitant]
     Dosage: 500 MG
     Route: 048
     Dates: start: 20090903
  12. URSO [Concomitant]
     Dosage: 300 MG
     Route: 048
     Dates: start: 20090917
  13. ADONA [Concomitant]
     Dosage: 20 MG
     Route: 048
     Dates: start: 20091014, end: 20091021
  14. TRANSAMIN [Concomitant]
     Dosage: 500 MG
     Route: 048
     Dates: start: 20091014, end: 20091021
  15. POVIDONE IODINE [Concomitant]
     Route: 048
     Dates: start: 20091026
  16. RINDERON-VG [Concomitant]
     Dosage: 5 G, UNK
     Dates: start: 20091001, end: 20091007
  17. ZETIA [Concomitant]
     Indication: DYSLIPIDAEMIA
     Dosage: 10 MG, UNK
     Route: 048
     Dates: start: 20100128
  18. LIPITOR [Concomitant]
     Indication: DYSLIPIDAEMIA
     Dosage: 5 MG, UNK
     Dates: start: 20100326
  19. FERROMIA [Concomitant]
     Dosage: 50 MG
     Route: 048
     Dates: start: 20100312, end: 20100411
  20. NAUZELIN [Concomitant]
     Dosage: 5 MG
     Route: 048
     Dates: start: 20100312, end: 20100411
  21. FOIPAN [Concomitant]
     Indication: PANCREATIC ENZYMES INCREASED
     Dosage: 600 MG
     Route: 048
     Dates: start: 20100903, end: 20101202
  22. SPRYCEL [Concomitant]
     Indication: CHRONIC MYELOID LEUKAEMIA
     Dosage: 20 MG
     Route: 048
     Dates: start: 20101126, end: 20110316

REACTIONS (4)
  - Platelet count decreased [Recovered/Resolved]
  - Pancytopenia [Recovering/Resolving]
  - White blood cell count decreased [Unknown]
  - Neutrophil count decreased [Recovered/Resolved]
